FAERS Safety Report 5191504-5 (Version None)
Quarter: 2006Q4

REPORT INFORMATION
  Report Type: 
  Country: None (occurrence: None)
  Receive Date: 20061226
  Receipt Date: 20060329
  Transmission Date: 20070319
  Serious: Yes (Death)
  Sender: FDA-Public Use
  Company Number: US-SANOFI-SYNTHELABO-A03200601881

PATIENT
  Sex: Male
  Weight: 47.62 kg

DRUGS (5)
  1. COMBIVENT [Concomitant]
     Dosage: UNK
     Route: 055
     Dates: start: 20020101
  2. ASPIRIN [Concomitant]
     Route: 048
  3. VASOTEC [Concomitant]
     Dosage: UNK
     Route: 048
  4. IMDUR [Concomitant]
     Dosage: UNK
     Route: 048
  5. PLAVIX [Suspect]
     Indication: STENT PLACEMENT
     Route: 048
     Dates: start: 20050901

REACTIONS (1)
  - CARDIAC FAILURE [None]
